FAERS Safety Report 5297750-4 (Version None)
Quarter: 2007Q2

REPORT INFORMATION
  Report Type: 
  Country: None (occurrence: None)
  Receive Date: 20070416
  Receipt Date: 20070403
  Transmission Date: 20071010
  Serious: Yes (Hospitalization)
  Sender: FDA-Public Use
  Company Number: US-ELI_LILLY_AND_COMPANY-US200703005974

PATIENT
  Age: 69 Year
  Sex: Female
  Weight: 59.863 kg

DRUGS (4)
  1. FORTEO [Suspect]
     Indication: OSTEOPOROSIS
     Dosage: 20 UG, DAILY (1/D)
     Dates: start: 20060201, end: 20070130
  2. PLAVIX [Concomitant]
  3. ADVIL                              /00109201/ [Concomitant]
  4. FERGON [Concomitant]

REACTIONS (4)
  - ANAEMIA [None]
  - DUODENITIS [None]
  - GASTRITIS EROSIVE [None]
  - UPPER GASTROINTESTINAL HAEMORRHAGE [None]
